FAERS Safety Report 6341746-8 (Version None)
Quarter: 2009Q3

REPORT INFORMATION
  Report Type: 
  Country: None (occurrence: None)
  Receive Date: 20090904
  Receipt Date: 20090825
  Transmission Date: 20100115
  Serious: Yes (Other)
  Sender: FDA-Public Use
  Company Number: PHHY2009JP33500

PATIENT
  Sex: Male
  Weight: 83 kg

DRUGS (3)
  1. LAMISIL [Suspect]
     Indication: TINEA PEDIS
     Dosage: 125MG PER DAY
     Route: 048
     Dates: start: 20090510, end: 20090805
  2. SHAKUYAKUKANZOUTO [Concomitant]
     Indication: MUSCLE SPASMS
     Dosage: 7.5 G, PRN
     Route: 048
  3. LENCHENCE [Concomitant]
     Dosage: UNK
     Dates: start: 20090510

REACTIONS (1)
  - BLOOD CREATINE PHOSPHOKINASE INCREASED [None]
